FAERS Safety Report 25329806 (Version 2)
Quarter: 2025Q2

REPORT INFORMATION
  Report Type: Report from Study
  Country: FR (occurrence: FR)
  Receive Date: 20250519
  Receipt Date: 20250530
  Transmission Date: 20250716
  Serious: Yes (Hospitalization, Other)
  Sender: AUROBINDO
  Company Number: FR-CHEPLA-2025005625

PATIENT
  Age: 76 Year
  Sex: Male

DRUGS (3)
  1. CANDESARTAN [Suspect]
     Active Substance: CANDESARTAN
     Indication: Product used for unknown indication
     Route: 065
  2. CELIPROLOL [Suspect]
     Active Substance: CELIPROLOL
     Indication: Product used for unknown indication
     Route: 065
  3. AMLODIPINE [Suspect]
     Active Substance: AMLODIPINE BESYLATE
     Indication: Product used for unknown indication
     Route: 065

REACTIONS (5)
  - Suicide attempt [Unknown]
  - Haemodynamic instability [Unknown]
  - Hypotension [Unknown]
  - Bradycardia [Unknown]
  - Toxicity to various agents [Unknown]
